FAERS Safety Report 8114695-2 (Version None)
Quarter: 2012Q1

REPORT INFORMATION
  Report Type: 
  Country: None (occurrence: None)
  Receive Date: 20120206
  Receipt Date: 20120201
  Transmission Date: 20120608
  Serious: Yes (Other)
  Sender: FDA-Public Use
  Company Number: US-PFIZER INC-2012028203

PATIENT
  Sex: Female
  Weight: 86.2 kg

DRUGS (1)
  1. PREMPRO [Suspect]
     Indication: OSTEOPOROSIS PROPHYLAXIS
     Dosage: 0.3 /1.5 MG, 1X/DAY
     Route: 048
     Dates: start: 19920101

REACTIONS (4)
  - HAEMORRHAGE [None]
  - HAND FRACTURE [None]
  - DRUG INEFFECTIVE [None]
  - MUSCLE SPASMS [None]
